FAERS Safety Report 7369467-3 (Version None)
Quarter: 2011Q1

REPORT INFORMATION
  Report Type: 
  Country: None (occurrence: None)
  Receive Date: 20110323
  Receipt Date: 20110308
  Transmission Date: 20110831
  Serious: Yes (Hospitalization)
  Sender: FDA-Public Use
  Company Number: PHHY2009DE14016

PATIENT
  Age: 36 Year
  Sex: Female
  Weight: 80 kg

DRUGS (7)
  1. SANDIMMUNE [Interacting]
     Dosage: 150 MG, QD
     Route: 048
     Dates: start: 20081213
  2. ALCOHOL [Interacting]
  3. LEVOTHYROXINE SODIUM [Concomitant]
     Indication: HYPOTHYROIDISM
     Dosage: 75 MG, QD
     Route: 048
     Dates: start: 20070901
  4. DEXAMETHASONE [Concomitant]
     Indication: GLOMERULONEPHRITIS
     Dosage: 0.25 MG, QD
     Route: 048
     Dates: start: 20070901
  5. SELENASE [Concomitant]
     Indication: GLOMERULONEPHRITIS
     Dosage: 300 MG, QD
     Route: 048
     Dates: start: 20070901
  6. SANDIMMUNE [Suspect]
     Indication: GLOMERULONEPHRITIS
     Dosage: 200 MG, UNK
     Route: 048
     Dates: start: 20081212, end: 20081212
  7. KARVEA [Concomitant]
     Indication: GLOMERULONEPHRITIS
     Dosage: 300 MG, QD
     Route: 048
     Dates: start: 20000101

REACTIONS (10)
  - ALCOHOL INTOLERANCE [None]
  - DIZZINESS [None]
  - NAUSEA [None]
  - CARDIOVASCULAR DISORDER [None]
  - BLOOD POTASSIUM INCREASED [None]
  - BLOOD CREATININE INCREASED [None]
  - PRESYNCOPE [None]
  - ABDOMINAL PAIN UPPER [None]
  - ELECTROCARDIOGRAM ABNORMAL [None]
  - VOMITING [None]
